FAERS Safety Report 20214664 (Version 1)
Quarter: 2021Q4

REPORT INFORMATION
  Report Type: Spontaneous
  Country: US (occurrence: US)
  Receive Date: 20211221
  Receipt Date: 20211221
  Transmission Date: 20220303
  Serious: Yes (Death, Life-Threatening, Other)
  Sender: FDA-Public Use
  Company Number: US-AMGEN-USASP2021200397

PATIENT

DRUGS (4)
  1. FILGRASTIM [Suspect]
     Active Substance: FILGRASTIM
     Indication: Prophylaxis
     Dosage: UNK (ON DAYS 9 THROUGH 15)
     Route: 065
  2. PEGFILGRASTIM [Suspect]
     Active Substance: PEGFILGRASTIM
     Indication: Prophylaxis
     Dosage: 6 MILLIGRAM (ON DAY 9 OR 10 OF EACH CYCLE)
     Route: 065
  3. GEMCITABINE [Suspect]
     Active Substance: GEMCITABINE
     Indication: Colorectal cancer metastatic
     Dosage: 800 MILLIGRAM/SQ. METER (ON DAYS 1 AND 8)
     Route: 042
  4. DOCETAXEL [Suspect]
     Active Substance: DOCETAXEL
     Indication: Colorectal cancer metastatic
     Dosage: 70 MILLIGRAM/SQ. METER (ON DAY 8 OF EACH 21 DAY CYCLE)
     Route: 042

REACTIONS (13)
  - Death [Fatal]
  - Colorectal adenocarcinoma [Fatal]
  - Sepsis [Unknown]
  - Lymphopenia [Unknown]
  - Leukopenia [Unknown]
  - Neutropenia [Unknown]
  - Abdominal pain [Unknown]
  - Deep vein thrombosis [Unknown]
  - Blood albumin decreased [Unknown]
  - Neuropathy peripheral [Unknown]
  - Anaemia [Unknown]
  - Alopecia [Unknown]
  - Drug ineffective [Unknown]
